FAERS Safety Report 15444751 (Version 1)
Quarter: 2018Q3

REPORT INFORMATION
  Report Type: Report from Study
  Country: US (occurrence: US)
  Receive Date: 20180928
  Receipt Date: 20180928
  Transmission Date: 20181010
  Serious: No
  Sender: FDA-Public Use
  Company Number: PHEH2018US039957

PATIENT
  Sex: Male
  Weight: 111.13 kg

DRUGS (1)
  1. COSENTYX [Suspect]
     Active Substance: SECUKINUMAB
     Indication: PSORIATIC ARTHROPATHY
     Route: 058
     Dates: start: 201701

REACTIONS (4)
  - Hypoaesthesia [Unknown]
  - Abdominal distension [Recovered/Resolved with Sequelae]
  - Flatulence [Unknown]
  - Carpal tunnel syndrome [Unknown]
